FAERS Safety Report 19483637 (Version 1)
Quarter: 2021Q3

REPORT INFORMATION
  Report Type: Other
  Country: US (occurrence: US)
  Receive Date: 20210701
  Receipt Date: 20210701
  Transmission Date: 20211014
  Serious: No
  Sender: FDA-Public Use
  Company Number: US-ROCHE-2597218

PATIENT
  Age: 51 Year
  Sex: Female

DRUGS (20)
  1. TEMAZEPAM. [Concomitant]
     Active Substance: TEMAZEPAM
  2. CYCLOBENZAPRINE. [Concomitant]
     Active Substance: CYCLOBENZAPRINE
  3. ESTRADIOL. [Concomitant]
     Active Substance: ESTRADIOL
  4. OLANZAPINE. [Concomitant]
     Active Substance: OLANZAPINE
  5. FUROSEMIDE. [Concomitant]
     Active Substance: FUROSEMIDE
  6. CLONIDINE. [Concomitant]
     Active Substance: CLONIDINE
  7. ZOLPIDEM [Concomitant]
     Active Substance: ZOLPIDEM TARTRATE
     Dosage: AT NIGHT
  8. METRONIDAZOLE. [Concomitant]
     Active Substance: METRONIDAZOLE
  9. TEMAZEPAM. [Concomitant]
     Active Substance: TEMAZEPAM
  10. INVEGA [Concomitant]
     Active Substance: PALIPERIDONE
  11. CLONAZEPAM. [Suspect]
     Active Substance: CLONAZEPAM
     Dosage: NIGHT
     Route: 065
  12. SUMATRIPTAN. [Concomitant]
     Active Substance: SUMATRIPTAN
  13. OXYMETAZOLINE [Concomitant]
     Active Substance: OXYMETAZOLINE
  14. CLONAZEPAM. [Suspect]
     Active Substance: CLONAZEPAM
     Indication: BIPOLAR DISORDER
     Dosage: NIGHT
     Route: 065
  15. LURASIDONE [Concomitant]
     Active Substance: LURASIDONE
     Indication: BIPOLAR DISORDER
     Dosage: 120 MG/D WITH A MEAL
  16. LAMOTRIGINE. [Concomitant]
     Active Substance: LAMOTRIGINE
  17. TRAZODONE [Concomitant]
     Active Substance: TRAZODONE HYDROCHLORIDE
     Dosage: AT NIGHT
  18. MIRENA [Concomitant]
     Active Substance: LEVONORGESTREL
  19. VERAPAMIL [Concomitant]
     Active Substance: VERAPAMIL HYDROCHLORIDE
  20. OLANZAPINE. [Concomitant]
     Active Substance: OLANZAPINE
     Indication: INSOMNIA
     Dosage: 2.5?5.0 MG NIGHTLY

REACTIONS (2)
  - No adverse event [Unknown]
  - Overdose [Unknown]
